FAERS Safety Report 7158339-5 (Version None)
Quarter: 2010Q4

REPORT INFORMATION
  Report Type: 
  Country: None (occurrence: None)
  Receive Date: 20101214
  Receipt Date: 20100304
  Transmission Date: 20110411
  Serious: Yes (Other)
  Sender: FDA-Public Use
  Company Number: US-PFIZER INC-2010013357

PATIENT
  Sex: Female
  Weight: 74 kg

DRUGS (3)
  1. ARTHROTEC [Suspect]
     Indication: SPINAL COLUMN STENOSIS
     Dosage: 75MG/200MCG 2X/DAY,
     Route: 048
     Dates: start: 20100126, end: 20100127
  2. ARTHROTEC [Suspect]
     Indication: INTERVERTEBRAL DISC PROTRUSION
  3. ARTHROTEC [Suspect]
     Indication: ARTHRITIS

REACTIONS (12)
  - ABDOMINAL PAIN UPPER [None]
  - CHILLS [None]
  - DIARRHOEA [None]
  - FEELING COLD [None]
  - FEELING HOT [None]
  - HEART RATE INCREASED [None]
  - HUNGER [None]
  - HYPERHIDROSIS [None]
  - NAUSEA [None]
  - PAIN [None]
  - PALPITATIONS [None]
  - VOMITING [None]
